FAERS Safety Report 17451540 (Version 1)
Quarter: 2020Q1

REPORT INFORMATION
  Report Type: Spontaneous
  Country: US (occurrence: US)
  Receive Date: 20200223
  Receipt Date: 20200223
  Transmission Date: 20200409
  Serious: Yes (Other)
  Sender: FDA-Public Use
  Company Number: None

PATIENT
  Age: 40 Year
  Sex: Female
  Weight: 45 kg

DRUGS (8)
  1. FIORICET [Concomitant]
     Active Substance: ACETAMINOPHEN\BUTALBITAL\CAFFEINE
  2. GABAPENTIN. [Concomitant]
     Active Substance: GABAPENTIN
  3. ZOLOFT [Concomitant]
     Active Substance: SERTRALINE HYDROCHLORIDE
  4. TIZANIDINE. [Concomitant]
     Active Substance: TIZANIDINE
  5. LYRICA [Concomitant]
     Active Substance: PREGABALIN
  6. CLONAZEPAM. [Concomitant]
     Active Substance: CLONAZEPAM
  7. AMBIEN [Concomitant]
     Active Substance: ZOLPIDEM TARTRATE
  8. EMGALITY [Suspect]
     Active Substance: GALCANEZUMAB-GNLM
     Indication: MIGRAINE
     Dates: start: 20190331, end: 20190331

REACTIONS (5)
  - Hyperacusis [None]
  - Photophobia [None]
  - Vomiting [None]
  - Nausea [None]
  - Headache [None]

NARRATIVE: CASE EVENT DATE: 20190331
